FAERS Safety Report 7770464-4 (Version None)
Quarter: 2011Q3

REPORT INFORMATION
  Report Type: 
  Country: None (occurrence: None)
  Receive Date: 20110922
  Receipt Date: 20100914
  Transmission Date: 20111222
  Serious: Yes (Other)
  Sender: FDA-Public Use
  Company Number: US-ASTRAZENECA-2007UW19104

PATIENT
  Age: 43 Year
  Sex: Female
  Weight: 77.1 kg

DRUGS (6)
  1. ABILIFY [Concomitant]
     Dates: start: 20050613, end: 20050701
  2. PROZAC [Concomitant]
     Dates: start: 20050826
  3. RISPERDAL [Concomitant]
     Dosage: 2 MG AT MORNING AND AT NIGHT
     Dates: start: 20050826
  4. SEROQUEL [Suspect]
     Indication: SCHIZOPHRENIA
     Dosage: 100-800 MG
     Route: 048
     Dates: start: 20000715, end: 20060714
  5. RISPERDAL [Concomitant]
     Indication: SCHIZOPHRENIA
     Dosage: 2 MG TO 4 MG
     Dates: start: 20040603, end: 20060120
  6. TRAZODONE HYDROCHLORIDE [Concomitant]
     Dosage: 50-100 MG AT NIGHT
     Dates: start: 20050826

REACTIONS (2)
  - TYPE 2 DIABETES MELLITUS [None]
  - PANCREATITIS [None]
